FAERS Safety Report 25121101 (Version 3)
Quarter: 2025Q2

REPORT INFORMATION
  Report Type: Spontaneous
  Country: JP (occurrence: JP)
  Receive Date: 20250326
  Receipt Date: 20250630
  Transmission Date: 20250717
  Serious: Yes (Life-Threatening, Hospitalization, Other)
  Sender: TAKEDA
  Company Number: JP-TAKEDA-2025TJP003101

PATIENT
  Age: 7 Decade
  Sex: Female

DRUGS (1)
  1. FRUZAQLA [Suspect]
     Active Substance: FRUQUINTINIB
     Indication: Colon cancer
     Dates: start: 20250108, end: 20250319

REACTIONS (3)
  - Hypothyroidism [Recovering/Resolving]
  - Encephalopathy [Unknown]
  - Epilepsy [Unknown]

NARRATIVE: CASE EVENT DATE: 20250301
